FAERS Safety Report 6518120-4 (Version None)
Quarter: 2009Q4

REPORT INFORMATION
  Report Type: 
  Country: None (occurrence: None)
  Receive Date: 20091223
  Receipt Date: 20091223
  Transmission Date: 20100525
  Serious: Yes (Other)
  Sender: FDA-Public Use
  Company Number: None

PATIENT
  Age: 55 Year
  Sex: Female
  Weight: 76 kg

DRUGS (1)
  1. JANUVIA [Suspect]

REACTIONS (1)
  - HYPERSENSITIVITY [None]
